FAERS Safety Report 19735795 (Version 2)
Quarter: 2021Q3

REPORT INFORMATION
  Report Type: Report from Study
  Country: IT (occurrence: IT)
  Receive Date: 20210823
  Receipt Date: 20210826
  Transmission Date: 20211014
  Serious: Yes (Hospitalization)
  Sender: FDA-Public Use
  Company Number: IT-ACCORD-235961

PATIENT
  Age: 21 Year
  Sex: Female

DRUGS (2)
  1. RIVOTRIL [Suspect]
     Active Substance: CLONAZEPAM
     Indication: PRODUCT USED FOR UNKNOWN INDICATION
     Dosage: 2.5 MG / ML ORAL DROPS SOLUTION(TOTAL)
     Route: 048
     Dates: start: 20210607, end: 20210607
  2. QUETIAPINE. [Suspect]
     Active Substance: QUETIAPINE
     Indication: PRODUCT USED FOR UNKNOWN INDICATION
     Dosage: TOTAL
     Route: 048
     Dates: start: 20210607, end: 20210607

REACTIONS (6)
  - Intentional self-injury [Unknown]
  - Wound [Recovering/Resolving]
  - Tachycardia [Recovering/Resolving]
  - Drug abuse [Unknown]
  - Sopor [Recovering/Resolving]
  - Alcohol abuse [Unknown]

NARRATIVE: CASE EVENT DATE: 20210607
